FAERS Safety Report 5367224-0 (Version None)
Quarter: 2007Q2

REPORT INFORMATION
  Report Type: 
  Country: None (occurrence: None)
  Receive Date: 20070622
  Receipt Date: 20070614
  Transmission Date: 20071010
  Serious: Yes (Other)
  Sender: FDA-Public Use
  Company Number: PHRM2007FR01666

PATIENT
  Age: 37 Year
  Sex: Male

DRUGS (3)
  1. TAREG [Suspect]
     Indication: HYPERTENSION
     Dosage: 80 MG, QD
     Route: 048
     Dates: start: 19970101
  2. INDAPAMIDE [Concomitant]
  3. ASPIRIN [Concomitant]

REACTIONS (1)
  - AZOOSPERMIA [None]
